FAERS Safety Report 5048788-3 (Version None)
Quarter: 2006Q3

REPORT INFORMATION
  Report Type: 
  Country: None (occurrence: None)
  Receive Date: 20060705
  Receipt Date: 20060614
  Transmission Date: 20061208
  Serious: Yes (Other)
  Sender: FDA-Public Use
  Company Number: GB200606003467

PATIENT
  Age: 60 Year
  Sex: Female

DRUGS (4)
  1. OLANZAPINE [Suspect]
  2. EPILIM (VALPROATE SODIUM) [Concomitant]
  3. CHLORPROMAZINE [Concomitant]
  4. CLONAZEPAM [Concomitant]

REACTIONS (2)
  - LEUKOCYTOCLASTIC VASCULITIS [None]
  - MANIA [None]
